FAERS Safety Report 4556011-9 (Version None)
Quarter: 2005Q1

REPORT INFORMATION
  Report Type: 
  Country: None (occurrence: None)
  Receive Date: 20050118
  Receipt Date: 20041210
  Transmission Date: 20050727
  Serious: No
  Sender: FDA-Public Use
  Company Number: A03200404180

PATIENT
  Age: 75 Year
  Sex: Male

DRUGS (3)
  1. UROXATRAL [Suspect]
     Indication: BENIGN PROSTATIC HYPERPLASIA
     Dosage: 10 MG OD - ORAL
     Route: 048
     Dates: start: 20041101
  2. ACETYLSALICYLIC ACID SRT [Concomitant]
  3. DILTIAZEM [Concomitant]

REACTIONS (2)
  - FATIGUE [None]
  - PAIN IN EXTREMITY [None]
